FAERS Safety Report 6868393-3 (Version None)
Quarter: 2010Q3

REPORT INFORMATION
  Report Type: 
  Country: None (occurrence: None)
  Receive Date: 20100722
  Receipt Date: 20080616
  Transmission Date: 20110219
  Serious: No
  Sender: FDA-Public Use
  Company Number: US-PFIZER INC-2008045854

PATIENT
  Sex: Female
  Weight: 68.04 kg

DRUGS (5)
  1. CHANTIX [Suspect]
     Indication: SMOKING CESSATION THERAPY
     Dates: start: 20080515
  2. CELEXA [Interacting]
  3. VALIUM [Interacting]
  4. LISINOPRIL [Concomitant]
  5. CLONIDINE [Concomitant]

REACTIONS (7)
  - AGITATION [None]
  - ANGER [None]
  - CONFUSIONAL STATE [None]
  - DRUG INTERACTION [None]
  - FEELING ABNORMAL [None]
  - NAUSEA [None]
  - TOBACCO USER [None]
